FAERS Safety Report 8834468 (Version 1)
Quarter: 2012Q4

REPORT INFORMATION
  Report Type: 
  Country: US (occurrence: US)
  Receive Date: 20121010
  Receipt Date: 20121010
  Transmission Date: 20130627
  Serious: No
  Sender: FDA-Public Use
  Company Number: US-009507513-1210USA000502

PATIENT
  Age: 70 Year
  Sex: Female

DRUGS (3)
  1. JANUVIA [Suspect]
     Dosage: 50 mg, qd
     Route: 048
  2. VICTOZA [Suspect]
     Route: 058
  3. GLYBURIDE [Suspect]
     Dosage: 10 mg, bid
     Route: 048

REACTIONS (1)
  - Blood glucose increased [Unknown]
